FAERS Safety Report 15429170 (Version 1)
Quarter: 2018Q3

REPORT INFORMATION
  Report Type: Spontaneous
  Country: US (occurrence: US)
  Receive Date: 20180926
  Receipt Date: 20180926
  Transmission Date: 20181010
  Serious: No
  Sender: FDA-Public Use
  Company Number: US-PFIZER INC-2018379331

PATIENT
  Age: 20 Year
  Sex: Male
  Weight: 45.35 kg

DRUGS (2)
  1. XELJANZ [Suspect]
     Active Substance: TOFACITINIB CITRATE
     Indication: COLITIS ULCERATIVE
     Dosage: 20 MG, DAILY (QTY 120/ DAYS SUPPLY 30)
  2. XELJANZ [Suspect]
     Active Substance: TOFACITINIB CITRATE
     Dosage: 5 MG, DAILY
     Route: 048
     Dates: start: 20180821

REACTIONS (5)
  - Nasopharyngitis [Unknown]
  - Rhinorrhoea [Unknown]
  - Prescribed overdose [Unknown]
  - Nasal congestion [Unknown]
  - Throat irritation [Unknown]
